FAERS Safety Report 4836703-4 (Version None)
Quarter: 2005Q4

REPORT INFORMATION
  Report Type: 
  Country: None (occurrence: None)
  Receive Date: 20051121
  Receipt Date: 20051107
  Transmission Date: 20060501
  Serious: Yes (Hospitalization)
  Sender: FDA-Public Use
  Company Number: SGB1-2005-00493

PATIENT
  Sex: 0

DRUGS (17)
  1. LANTHANUM CARBONATE (LANTHANUM CARBONATE) TABLET CHEWABLE [Suspect]
     Indication: HYPERPHOSPHATAEMIA
     Dosage: 750 MG DAILY, ORAL; SEE IMAGE
     Route: 048
     Dates: start: 20050531, end: 20050605
  2. LANTHANUM CARBONATE (LANTHANUM CARBONATE) TABLET CHEWABLE [Suspect]
     Indication: HYPERPHOSPHATAEMIA
     Dosage: 750 MG DAILY, ORAL; SEE IMAGE
     Route: 048
     Dates: start: 20050606, end: 20050717
  3. LANTHANUM CARBONATE (LANTHANUM CARBONATE) TABLET CHEWABLE [Suspect]
     Indication: HYPERPHOSPHATAEMIA
     Dosage: 750 MG DAILY, ORAL; SEE IMAGE
     Route: 048
     Dates: start: 20050718, end: 20050731
  4. LANTHANUM CARBONATE (LANTHANUM CARBONATE) TABLET CHEWABLE [Suspect]
     Indication: HYPERPHOSPHATAEMIA
     Dosage: 750 MG DAILY, ORAL; SEE IMAGE
     Route: 048
     Dates: start: 20050801, end: 20050904
  5. LANTHANUM CARBONATE (LANTHANUM CARBONATE) TABLET CHEWABLE [Suspect]
     Indication: HYPERPHOSPHATAEMIA
     Dosage: 750 MG DAILY, ORAL; SEE IMAGE
     Route: 048
     Dates: start: 20050905, end: 20051026
  6. LEVOTHYROXINE SODIUM [Concomitant]
  7. NEUER (CETRAXATE HYDROCHLORIDE) [Concomitant]
  8. CLONAZEPAM [Concomitant]
  9. NORVASC /00972401/(AMLODIPINE) [Concomitant]
  10. BLOPRESS (CANDESARTAN CILEXETIL) [Concomitant]
  11. ALLOPURINOL [Concomitant]
  12. BETAMETHASONE DIPROPIONATE (BETAMETHASONE DIPROPIONATE) [Concomitant]
  13. EPOGEN [Concomitant]
  14. OXAROL (MAXACALCITOL) [Concomitant]
  15. INTAL [Concomitant]
  16. KARY UNI (PIRENOXINE) [Concomitant]
  17. YAKUBAN (FLURBIPROFEN) [Concomitant]

REACTIONS (3)
  - ANGINA UNSTABLE [None]
  - CORONARY ARTERY OCCLUSION [None]
  - MYOCARDIAL ISCHAEMIA [None]
